FAERS Safety Report 11658537 (Version 1)
Quarter: 2015Q4

REPORT INFORMATION
  Report Type: Spontaneous
  Country: US (occurrence: US)
  Receive Date: 20151026
  Receipt Date: 20151026
  Transmission Date: 20160304
  Serious: No
  Sender: FDA-Public Use
  Company Number: US-MACLEODS PHARMACEUTICALS US LTD-MAC2015001980

PATIENT

DRUGS (3)
  1. IRBESARTAN 300MG TABLET [Suspect]
     Active Substance: IRBESARTAN
     Dosage: 300 MG, UNK
     Route: 048
  2. IRBESARTAN 300MG TABLET [Suspect]
     Active Substance: IRBESARTAN
     Dosage: 300 MG, UNK
     Route: 048
  3. IRBESARTAN 300MG TABLET [Suspect]
     Active Substance: IRBESARTAN
     Indication: PRODUCT USED FOR UNKNOWN INDICATION
     Dosage: 300 MG, UNK
     Route: 048

REACTIONS (2)
  - Drug ineffective [Unknown]
  - Blood pressure increased [Unknown]
